FAERS Safety Report 25190687 (Version 1)
Quarter: 2025Q2

REPORT INFORMATION
  Report Type: Spontaneous
  Country: US (occurrence: US)
  Receive Date: 20250411
  Receipt Date: 20250411
  Transmission Date: 20250717
  Serious: No
  Sender: BAUSCH AND LOMB
  Company Number: US-BAUSCHBL-2025BNL005930

PATIENT
  Age: 79 Year
  Sex: Female

DRUGS (3)
  1. XIIDRA [Suspect]
     Active Substance: LIFITEGRAST
     Indication: Dry eye
     Dosage: ONE DROP IN EACH EYE EVERY 12 HOURS
     Route: 047
     Dates: start: 20250308, end: 20250329
  2. XIIDRA [Suspect]
     Active Substance: LIFITEGRAST
     Indication: Inflammation
  3. FLUOROMETHOLONE [Concomitant]
     Active Substance: FLUOROMETHOLONE
     Indication: Product used for unknown indication

REACTIONS (5)
  - Instillation site irritation [Unknown]
  - Vision blurred [Unknown]
  - Periorbital swelling [Unknown]
  - Rash [Recovered/Resolved]
  - Visual impairment [Unknown]

NARRATIVE: CASE EVENT DATE: 20250301
